FAERS Safety Report 10505772 (Version 1)
Quarter: 2014Q4

REPORT INFORMATION
  Report Type: Spontaneous
  Country: CA (occurrence: CA)
  Receive Date: 20141008
  Receipt Date: 20141008
  Transmission Date: 20150528
  Serious: Yes (Other)
  Sender: FDA-Public Use
  Company Number: PHHY2014CA128349

PATIENT
  Age: 67 Year
  Sex: Male

DRUGS (7)
  1. NICOTINE. [Concomitant]
     Active Substance: NICOTINE
     Dosage: 14 MG, DAILY
  2. QUETIAPINE [Concomitant]
     Active Substance: QUETIAPINE
     Dosage: 50 MG, PER DAY
  3. VENLAFAXINE [Concomitant]
     Active Substance: VENLAFAXINE HYDROCHLORIDE
     Dosage: 225 MG, PER DAY
  4. QUETIAPINE [Concomitant]
     Active Substance: QUETIAPINE
     Dosage: 100 MG, PER DAY
  5. BUPROPION [Suspect]
     Active Substance: BUPROPION
     Dosage: 150 MG, PER DAY
     Dates: start: 201203
  6. QUETIAPINE [Concomitant]
     Active Substance: QUETIAPINE
     Dosage: 25 MG, BID AS NEEDED
  7. BUPROPION [Suspect]
     Active Substance: BUPROPION
     Dosage: 150 MG, BID

REACTIONS (10)
  - Agitation [Unknown]
  - Hypomania [Recovered/Resolved]
  - Euphoric mood [Unknown]
  - Tachyphrenia [Unknown]
  - Sleep disorder [Unknown]
  - Anxiety [Unknown]
  - Tension [Unknown]
  - Feeling abnormal [Unknown]
  - Disturbance in attention [Unknown]
  - Mood altered [Unknown]
